FAERS Safety Report 8905182 (Version 3)
Quarter: 2013Q1

REPORT INFORMATION
  Report Type: Spontaneous
  Country: US (occurrence: US)
  Receive Date: 20121109
  Receipt Date: 20130215
  Transmission Date: 20140127
  Serious: No
  Sender: FDA-Public Use
  Company Number: US-009507513-1211USA000918

PATIENT
  Age: 29 Year
  Sex: Female
  Weight: 82.54 kg

DRUGS (1)
  1. NEXPLANON [Suspect]
     Indication: CONTRACEPTION
     Dosage: 68 MG 3 YEAR IMPLANT
     Route: 059
     Dates: start: 20121030

REACTIONS (2)
  - Device difficult to use [Unknown]
  - No adverse event [Unknown]
